FAERS Safety Report 24989274 (Version 2)
Quarter: 2025Q1

REPORT INFORMATION
  Report Type: Spontaneous
  Country: US (occurrence: US)
  Receive Date: 20250220
  Receipt Date: 20250319
  Transmission Date: 20250409
  Serious: No
  Sender: AMGEN
  Company Number: US-AMGEN-USASP2025031525

PATIENT
  Age: 69 Year
  Sex: Female

DRUGS (1)
  1. NEULASTA [Suspect]
     Active Substance: PEGFILGRASTIM
     Indication: Neutropenia
     Route: 065
     Dates: start: 20241212

REACTIONS (1)
  - Intercepted product preparation error [Recovered/Resolved]

NARRATIVE: CASE EVENT DATE: 20250213
